FAERS Safety Report 9375155 (Version 2)
Quarter: 2013Q3

REPORT INFORMATION
  Report Type: Spontaneous
  Country: JP (occurrence: JP)
  Receive Date: 20130628
  Receipt Date: 20130710
  Transmission Date: 20140515
  Serious: Yes (Life-Threatening, Hospitalization, Other)
  Sender: FDA-Public Use
  Company Number: JP-009507513-1306JPN004799

PATIENT
  Age: 52 Year
  Sex: Male
  Weight: 98 kg

DRUGS (6)
  1. JANUVIA TABLETS 50MG [Suspect]
     Indication: TYPE 2 DIABETES MELLITUS
     Dosage: 50 MG, QD
     Route: 048
     Dates: start: 20100219, end: 20130419
  2. METGLUCO [Concomitant]
     Indication: TYPE 2 DIABETES MELLITUS
     Dosage: 250 MG, BID
     Route: 048
     Dates: start: 20050718, end: 20130419
  3. CRESTOR [Concomitant]
     Indication: HYPERLIPIDAEMIA
     Dosage: 10 MG, QD
     Route: 048
     Dates: start: 20070702, end: 20130419
  4. CRESTOR [Concomitant]
     Dosage: UNK
  5. GLIMEPIRIDE [Concomitant]
     Indication: TYPE 2 DIABETES MELLITUS
     Dosage: 1 MG, QD
     Route: 048
     Dates: start: 20050718, end: 20130419
  6. ADALAT CR [Concomitant]
     Indication: HYPERTENSION
     Dosage: 20 MG, BID
     Route: 048
     Dates: start: 20080301, end: 20130419

REACTIONS (2)
  - Autoimmune pancreatitis [Recovering/Resolving]
  - Abdominal pain upper [Unknown]
